FAERS Safety Report 7412588-7 (Version None)
Quarter: 2011Q2

REPORT INFORMATION
  Report Type: 
  Country: None (occurrence: None)
  Receive Date: 20110413
  Receipt Date: 20110411
  Transmission Date: 20111010
  Serious: Yes (Death)
  Sender: FDA-Public Use
  Company Number: JP-SANOFI-AVENTIS-2011SA021923

PATIENT

DRUGS (2)
  1. FLUOROURACIL [Concomitant]
     Route: 042
  2. TAXOTERE [Suspect]
     Route: 013

REACTIONS (2)
  - WHITE BLOOD CELL COUNT DECREASED [None]
  - CARDIO-RESPIRATORY ARREST [None]
